FAERS Safety Report 15673238 (Version 5)
Quarter: 2019Q1

REPORT INFORMATION
  Report Type: Spontaneous
  Country: DE (occurrence: DE)
  Receive Date: 20181129
  Receipt Date: 20190321
  Transmission Date: 20190417
  Serious: Yes (Hospitalization)
  Sender: FDA-Public Use
  Company Number: DE-NOVOPROD-634898

PATIENT
  Age: 48 Year
  Sex: Female
  Weight: 69 kg

DRUGS (5)
  1. NOVORAPID [Suspect]
     Active Substance: INSULIN ASPART
     Indication: TYPE 1 DIABETES MELLITUS
     Dosage: 43 U
     Route: 058
     Dates: start: 201712
  2. NOVORAPID [Suspect]
     Active Substance: INSULIN ASPART
     Dosage: DOSE INCREASED ( 60 U)
     Route: 058
     Dates: end: 20181106
  3. L-THYROXIN                         /00068001/ [Concomitant]
     Active Substance: LEVOTHYROXINE
     Dosage: 1 TAB, QD (IN THE MORNING)
     Dates: start: 201801
  4. NOVORAPID [Suspect]
     Active Substance: INSULIN ASPART
     Dosage: MORE THAN 50  IU
     Route: 058
     Dates: start: 20181105
  5. LIOTHYRONINE SODIUM. [Concomitant]
     Active Substance: LIOTHYRONINE SODIUM
     Dosage: 75MICROGRAMS(1-0-0)

REACTIONS (10)
  - Product physical issue [Unknown]
  - Blood glucose increased [Unknown]
  - Sepsis [Recovered/Resolved]
  - Product physical issue [Unknown]
  - Product leakage [Unknown]
  - Diabetic ketoacidosis [Recovered/Resolved]
  - Product physical issue [Unknown]
  - Product leakage [Unknown]
  - Diverticulitis [Unknown]
  - Product leakage [Unknown]

NARRATIVE: CASE EVENT DATE: 20181105
